FAERS Safety Report 25262286 (Version 1)
Quarter: 2025Q2

REPORT INFORMATION
  Report Type: Report from Study
  Country: GB (occurrence: GB)
  Receive Date: 20250502
  Receipt Date: 20250502
  Transmission Date: 20250716
  Serious: Yes (Disabling, Other)
  Sender: CELLTRION
  Company Number: GB-CELLTRION INC.-2025GB012678

PATIENT

DRUGS (1)
  1. INFLIXIMAB-DYYB [Suspect]
     Active Substance: INFLIXIMAB-DYYB
     Indication: Colitis ulcerative
     Dosage: 120MG PRE-FILLED PEN EVERY TWO WEEKS
     Route: 058
     Dates: start: 202405

REACTIONS (5)
  - Somnolence [Unknown]
  - Headache [Unknown]
  - Therapeutic response shortened [Unknown]
  - Product prescribing issue [Unknown]
  - Product dose omission issue [Unknown]
